FAERS Safety Report 24528166 (Version 1)
Quarter: 2024Q4

REPORT INFORMATION
  Report Type: Other
  Country: GB (occurrence: GB)
  Receive Date: 20241021
  Receipt Date: 20241021
  Transmission Date: 20250115
  Serious: Yes (Other)
  Sender: MACLEODS
  Company Number: GB-MACLEODS PHARMA-MAC2024049846

PATIENT

DRUGS (2)
  1. TENOFOVIR [Suspect]
     Active Substance: TENOFOVIR
     Indication: HIV infection
     Dosage: 1 COURSE OF TABS/CAP, PRIOR TO CONCEPTION AND EXPOSURE DURING FIRST TRIMESTER.
     Route: 048
     Dates: start: 20230606
  2. DOVATO [Suspect]
     Active Substance: DOLUTEGRAVIR SODIUM\LAMIVUDINE
     Indication: HIV infection
     Dosage: 1 COURSE OF TABS/CAP, PRIOR TO CONCEPTION AND EXPOSURE DURING FIRST TRIMESTER.
     Route: 048
     Dates: start: 20230606

REACTIONS (3)
  - Ectopic pregnancy [Unknown]
  - Abortion induced [Unknown]
  - Maternal exposure during pregnancy [Unknown]

NARRATIVE: CASE EVENT DATE: 20240930
